FAERS Safety Report 6433097-8 (Version None)
Quarter: 2009Q4

REPORT INFORMATION
  Report Type: 
  Country: None (occurrence: None)
  Receive Date: 20091105
  Receipt Date: 20091027
  Transmission Date: 20100525
  Serious: Yes (Death)
  Sender: FDA-Public Use
  Company Number: 2009AL006875

PATIENT
  Age: 78 Year
  Sex: Female

DRUGS (10)
  1. ACYCLOVIR [Suspect]
  2. LORAZEPAM [Suspect]
  3. MIRTAZAPINE [Suspect]
  4. PHENYTOIN [Suspect]
  5. AMITRIPTYLINE HCL [Concomitant]
  6. AMBIEN [Concomitant]
  7. ZOLOFT [Concomitant]
  8. LEXAPRO [Concomitant]
  9. TRAZODONE HCL [Concomitant]
  10. ZYPREXA [Concomitant]

REACTIONS (2)
  - DRUG TOXICITY [None]
  - PNEUMONIA [None]
